FAERS Safety Report 25526880 (Version 1)
Quarter: 2025Q3

REPORT INFORMATION
  Report Type: Report from Study
  Country: US (occurrence: US)
  Receive Date: 20250707
  Receipt Date: 20250707
  Transmission Date: 20251020
  Serious: Yes (Other)
  Sender: ABBVIE
  Company Number: US-ABBVIE-6357645

PATIENT
  Age: 44 Year
  Sex: Female

DRUGS (1)
  1. SKYRIZI [Suspect]
     Active Substance: RISANKIZUMAB-RZAA
     Indication: Product used for unknown indication
     Route: 058
     Dates: start: 20240222

REACTIONS (3)
  - Benign neoplasm [Unknown]
  - Osteoarthritis [Unknown]
  - Grip strength decreased [Unknown]

NARRATIVE: CASE EVENT DATE: 20240101
